FAERS Safety Report 7164508-0 (Version None)
Quarter: 2010Q4

REPORT INFORMATION
  Report Type: 
  Country: None (occurrence: None)
  Receive Date: 20101215
  Receipt Date: 20101213
  Transmission Date: 20110411
  Serious: Yes (Death, Hospitalization)
  Sender: FDA-Public Use
  Company Number: PHHO2010BR18881

PATIENT
  Sex: Male
  Weight: 53 kg

DRUGS (5)
  1. AMN107 AMN+CAP [Suspect]
     Indication: ACUTE LYMPHOCYTIC LEUKAEMIA
     Dosage: 400 MG, BID
     Route: 048
     Dates: start: 20100129, end: 20101017
  2. AMN107 AMN+CAP [Suspect]
     Dosage: 400 MG, BID
     Route: 048
     Dates: start: 20101109
  3. DEXAMETHASONE [Concomitant]
     Dosage: UNK
  4. VINCRISTINE [Concomitant]
     Dosage: UNK
  5. METHOTREXATE [Concomitant]

REACTIONS (3)
  - ESCHERICHIA TEST POSITIVE [None]
  - FEBRILE NEUTROPENIA [None]
  - SEPSIS [None]
